FAERS Safety Report 13003528 (Version 27)
Quarter: 2018Q2

REPORT INFORMATION
  Report Type: Other
  Country: CA (occurrence: CA)
  Receive Date: 20161206
  Receipt Date: 20180503
  Transmission Date: 20180711
  Serious: Yes (Hospitalization, Other)
  Sender: FDA-Public Use
  Company Number: CA-CELLTRION INC.-2016CA011048

PATIENT

DRUGS (69)
  1. INFLECTRA [Suspect]
     Active Substance: INFLIXIMAB-DYYB
     Dosage: 400 MG, CYCLIC (EVERY 2, 6 WEEKS, THEN EVERY 8 WEEKS FOR 12 MONTHS)
     Route: 042
     Dates: start: 20170104
  2. TYLENOL WITH CODEINE [Concomitant]
     Active Substance: ACETAMINOPHEN\CODEINE PHOSPHATE
     Dosage: 300/30 MG CODEINE 8 PER DAY AS NEEDED
     Route: 048
  3. FAMOTIDINE. [Concomitant]
     Active Substance: FAMOTIDINE
     Dosage: 40 MG 1 TABLET, 1X/DAY BEFORE BED
     Route: 048
  4. LOPRESSOR [Concomitant]
     Active Substance: METOPROLOL TARTRATE
     Dosage: 50 MG 1 TABLET, 2X/DAY
  5. LASIX [Concomitant]
     Active Substance: FUROSEMIDE
     Dosage: 40 MG 1 TABLET, 1X/DAY AS DIRECTED
     Route: 048
  6. BETADINE [Concomitant]
     Active Substance: POVIDONE-IODINE
     Dosage: UNK
  7. PANTOPRAZOLE [Concomitant]
     Active Substance: PANTOPRAZOLE
     Dosage: 40 MG, DISCONTINUED
  8. FIBER SMART [Concomitant]
     Dosage: 2 TABS OF 800 MG, 1X/DAY
     Route: 048
  9. CODEINE CONTIN [Concomitant]
     Active Substance: CODEINE SULFATE
     Dosage: 50 MG 1 TABLET, 4X/DAY
  10. VAGIFEN [Concomitant]
     Active Substance: ESTRADIOL
     Dosage: 25 UG, 2X/WEEK (SUNDAY AND WEDNESDAY)
     Dates: start: 201104
  11. DANTRIUM [Concomitant]
     Active Substance: DANTROLENE SODIUM
     Dosage: 25 MG, AS NEEDED (SELDOM USED)
     Route: 048
  12. OMEGA 3-6-9 [Concomitant]
     Active Substance: FISH OIL
     Dosage: 1 TABLET 1200 MG, 3X/DAY
  13. CALCIUM [Concomitant]
     Active Substance: CALCIUM
     Dosage: UNK
  14. CIMETIDINE [Concomitant]
     Active Substance: CIMETIDINE
     Dosage: UNK
  15. LEFLUNOMIDE. [Concomitant]
     Active Substance: LEFLUNOMIDE
     Dosage: 20 MG, UNK
     Route: 048
     Dates: start: 20160613
  16. MAGNESIUM [Concomitant]
     Active Substance: MAGNESIUM
     Dosage: 1 TABLET, 3X/DAY
  17. METOPROLOL. [Concomitant]
     Active Substance: METOPROLOL
     Dosage: 50 MG, BID
     Route: 048
     Dates: start: 201201
  18. CODEINE CONTIN [Concomitant]
     Active Substance: CODEINE SULFATE
     Dosage: 50 MG 1 TABLET, 4X/DAY
  19. MIRAPEX [Concomitant]
     Active Substance: PRAMIPEXOLE DIHYDROCHLORIDE
     Dosage: 0.25 UNK, UNK
     Route: 048
  20. CYMBALTA [Concomitant]
     Active Substance: DULOXETINE HYDROCHLORIDE
     Dosage: 60 MG, UNK
     Route: 048
  21. BETADERM [Concomitant]
     Active Substance: BETAMETHASONE VALERATE
     Dosage: UNK, 3X/DAY
  22. SIMPONI [Concomitant]
     Active Substance: GOLIMUMAB
     Dosage: 50 MG/0.5ML SYRINGE
  23. LEFLUNOMIDE. [Concomitant]
     Active Substance: LEFLUNOMIDE
     Dosage: 20 MG, UNK
     Route: 048
  24. INFLECTRA [Suspect]
     Active Substance: INFLIXIMAB-DYYB
     Indication: PSORIATIC ARTHROPATHY
     Dosage: 400 MG, CYCLIC (EVERY 2, 6 WEEKS, THEN EVERY 8 WEEKS FOR 12 MONTHS)
     Route: 042
     Dates: start: 20160622, end: 201611
  25. INFLECTRA [Suspect]
     Active Substance: INFLIXIMAB-DYYB
     Dosage: 400 MG CYCLIC EVERY 8 WEEKS
     Route: 042
  26. INFLECTRA [Suspect]
     Active Substance: INFLIXIMAB-DYYB
     Dosage: 400 MG CYCLIC EVERY 6 WEEKS
     Route: 042
     Dates: start: 20180119
  27. INFLECTRA [Suspect]
     Active Substance: INFLIXIMAB-DYYB
     Dosage: 400 MG CYCLIC EVERY 6 WEEKS
     Route: 042
     Dates: start: 20180228
  28. LASIX [Concomitant]
     Active Substance: FUROSEMIDE
     Dosage: 40 MG 1 TABLET, 1X/DAY AS DIRECTED
     Route: 048
  29. DANTRIUM [Concomitant]
     Active Substance: DANTROLENE SODIUM
     Dosage: 25 MG, AS NEEDED (SELDOM USED)
     Route: 048
  30. FERAMAX [Concomitant]
     Active Substance: IRON\POLYSACCHARIDES
     Dosage: 150 MG 1 TABLET DAILY
     Route: 048
  31. VITAMIN D [Concomitant]
     Active Substance: CHOLECALCIFEROL
     Dosage: UNK
  32. INFLECTRA [Suspect]
     Active Substance: INFLIXIMAB-DYYB
     Dosage: 400 MG CYCLIC  (EVERY 0, 2,6 WEEKS, THEN EVERY 6 WEEKS)
     Route: 042
  33. MIRAPEX [Concomitant]
     Active Substance: PRAMIPEXOLE DIHYDROCHLORIDE
     Dosage: 0.125 MG, UNK
  34. CYMBALTA [Concomitant]
     Active Substance: DULOXETINE HYDROCHLORIDE
     Dosage: 20 MG 2 TABLETS ONCE DAILY
  35. CALCIUM MAGNESIUM WITH VITAMIN D [Concomitant]
     Dosage: CALCIUM 333 MG/MAGNESIUM 167MG/COLECALCIFEROL 133IU (1 TABLET), 3X/DAY
  36. OMEGA 3-6-9 [Concomitant]
     Active Substance: FISH OIL
     Dosage: 1 TABLET 1200 MG, 3X/DAY
  37. FERAMAX [Concomitant]
     Active Substance: IRON\POLYSACCHARIDES
     Dosage: 150 MG 1 TABLET DAILY
     Route: 048
  38. BETADINE [Concomitant]
     Active Substance: POVIDONE-IODINE
     Dosage: UNK
  39. ESTRADIOL. [Concomitant]
     Active Substance: ESTRADIOL
     Dosage: UNK
     Route: 048
  40. PANTOPRAZOLE [Concomitant]
     Active Substance: PANTOPRAZOLE
     Dosage: 40 MG, DISCONTINUED
  41. PREMARIN [Concomitant]
     Active Substance: ESTROGENS, CONJUGATED
     Dosage: UNK
  42. PREMARIN [Concomitant]
     Active Substance: ESTROGENS, CONJUGATED
     Dosage: UNK
  43. TYLENOL WITH CODEINE [Concomitant]
     Active Substance: ACETAMINOPHEN\CODEINE PHOSPHATE
     Dosage: 300/30 MG CODEINE 8 PER DAY AS NEEDED
     Route: 048
  44. MIRAPEX [Concomitant]
     Active Substance: PRAMIPEXOLE DIHYDROCHLORIDE
     Dosage: 0.25 UNK, UNK
     Route: 048
  45. LOPRESSOR [Concomitant]
     Active Substance: METOPROLOL TARTRATE
     Dosage: 50 MG 1 TABLET, 2X/DAY
  46. CYMBALTA [Concomitant]
     Active Substance: DULOXETINE HYDROCHLORIDE
     Dosage: 60 MG, UNK
     Route: 048
  47. BETADERM [Concomitant]
     Active Substance: BETAMETHASONE VALERATE
     Dosage: UNK, 3X/DAY
  48. COVERSYL [Concomitant]
     Active Substance: PERINDOPRIL
     Dosage: 2 MG, 1 TABLET, 1X/DAY
  49. CIMETIDINE [Concomitant]
     Active Substance: CIMETIDINE
     Dosage: UNK
  50. MAGNESIUM [Concomitant]
     Active Substance: MAGNESIUM
     Dosage: UNK
  51. VITAMIN D [Concomitant]
     Active Substance: CHOLECALCIFEROL
     Dosage: 1 TABLET, 3X/DAY
  52. INFLECTRA [Suspect]
     Active Substance: INFLIXIMAB-DYYB
     Dosage: 400 MG CYCLIC EVERY 6 WEEKS
     Route: 042
     Dates: start: 20180419
  53. MIRAPEX [Concomitant]
     Active Substance: PRAMIPEXOLE DIHYDROCHLORIDE
     Dosage: 0.125 MG, UNK
  54. FAMOTIDINE. [Concomitant]
     Active Substance: FAMOTIDINE
     Dosage: 40 MG 1 TABLET, 1X/DAY BEFORE BED
     Route: 048
  55. CYMBALTA [Concomitant]
     Active Substance: DULOXETINE HYDROCHLORIDE
     Dosage: 20 MG 2 TABLETS ONCE DAILY
  56. PROBIOTIC [Concomitant]
     Active Substance: PROBIOTICS NOS
     Dosage: 30 BILLION CELLS 1 TABLET DAILY AS NEEDED
  57. PREDNISONE. [Concomitant]
     Active Substance: PREDNISONE
     Dosage: 5 MG, AS DIRECTED
  58. SIMPONI [Concomitant]
     Active Substance: GOLIMUMAB
     Dosage: 50 MG/0.5ML SYRINGE
  59. NITROLINGUAL [Concomitant]
     Active Substance: NITROGLYCERIN
     Dosage: 0.4 MG/DOSE AS NEEDED
     Route: 048
  60. INFLECTRA [Suspect]
     Active Substance: INFLIXIMAB-DYYB
     Dosage: 400 MG, CYCLIC EVERY 6 WEEKS
     Route: 042
  61. TECTA [Concomitant]
     Active Substance: PANTOPRAZOLE MAGNESIUM
     Dosage: 40 MG 1 TABLET, 2X/DAY
     Dates: start: 201506
  62. CALCIUM MAGNESIUM WITH VITAMIN D [Concomitant]
     Dosage: CALCIUM 333 MG/MAGNESIUM 167 MG /COLECALCIFEROL 133IU ( 1 TABLET), 3X/DAY
  63. PROBIOTIC [Concomitant]
     Active Substance: PROBIOTICS NOS
     Dosage: 30 BILLION CELLS 1 TABLET DAILY AS NEEDED
  64. COVERSYL [Concomitant]
     Active Substance: PERINDOPRIL
     Dosage: 2 MG, 1 TABLET, 1X/DAY
  65. PREDNISONE. [Concomitant]
     Active Substance: PREDNISONE
     Dosage: 5 MG, AS DIRECTED
  66. CALCIUM [Concomitant]
     Active Substance: CALCIUM
     Dosage: UNK
  67. ESTRADIOL. [Concomitant]
     Active Substance: ESTRADIOL
     Dosage: UNK
     Route: 048
  68. ADALAT [Concomitant]
     Active Substance: NIFEDIPINE
     Dosage: 60 MG, DAILY
  69. LYRICA [Concomitant]
     Active Substance: PREGABALIN
     Dosage: UNK
     Route: 048
     Dates: start: 2017, end: 2017

REACTIONS (25)
  - Osteonecrosis of jaw [Unknown]
  - Muscle spasms [Not Recovered/Not Resolved]
  - Asthenia [Unknown]
  - Abdominal pain [Unknown]
  - Product use issue [Unknown]
  - Melanocytic naevus [Recovered/Resolved]
  - Muscular weakness [Not Recovered/Not Resolved]
  - Condition aggravated [Not Recovered/Not Resolved]
  - Rectal haemorrhage [Unknown]
  - Sciatica [Not Recovered/Not Resolved]
  - Product use issue [Unknown]
  - Psoriasis [Not Recovered/Not Resolved]
  - Bronchitis [Not Recovered/Not Resolved]
  - Hypertension [Recovering/Resolving]
  - Cough [Recovering/Resolving]
  - Stress [Unknown]
  - Influenza [Not Recovered/Not Resolved]
  - Psoriatic arthropathy [Not Recovered/Not Resolved]
  - Neuralgia [Unknown]
  - Intervertebral disc protrusion [Unknown]
  - Hepatic enzyme increased [Recovered/Resolved]
  - Pneumonia [Unknown]
  - Drug effect incomplete [Unknown]
  - Heart rate increased [Unknown]
  - Spinal column stenosis [Unknown]

NARRATIVE: CASE EVENT DATE: 2016
